FAERS Safety Report 5331067-4 (Version None)
Quarter: 2007Q2

REPORT INFORMATION
  Report Type: 
  Country: None (occurrence: None)
  Receive Date: 20070522
  Receipt Date: 20070514
  Transmission Date: 20071010
  Serious: Yes (Hospitalization)
  Sender: FDA-Public Use
  Company Number: B0471484A

PATIENT
  Age: 61 Year
  Sex: Female

DRUGS (3)
  1. AUGMENTIN '125' [Suspect]
     Indication: DERMATITIS
     Dosage: 2G THREE TIMES PER DAY
     Route: 048
     Dates: start: 20060928, end: 20061004
  2. DALACINE [Suspect]
     Indication: DERMATITIS
     Dosage: 600MG THREE TIMES PER DAY
     Route: 048
     Dates: start: 20060928, end: 20061015
  3. RIFADIN [Concomitant]
     Dates: start: 20061004, end: 20061008

REACTIONS (8)
  - DRUG RASH WITH EOSINOPHILIA AND SYSTEMIC SYMPTOMS [None]
  - EOSINOPHILIA [None]
  - ERYSIPELAS [None]
  - HEPATOCELLULAR DAMAGE [None]
  - HYPERAESTHESIA [None]
  - PRURIGO [None]
  - PYREXIA [None]
  - TOXIC SKIN ERUPTION [None]
